FAERS Safety Report 8230201-6 (Version None)
Quarter: 2012Q1

REPORT INFORMATION
  Report Type: 
  Country: None (occurrence: None)
  Receive Date: 20120323
  Receipt Date: 20120308
  Transmission Date: 20120608
  Serious: Yes (Hospitalization, Other)
  Sender: FDA-Public Use
  Company Number: DE-CELGENEUS-062-50794-12022807

PATIENT
  Age: 72 Year
  Sex: Male
  Weight: 75.2 kg

DRUGS (8)
  1. POLYETHYLENE GLYCOL [Concomitant]
     Route: 041
  2. FENISTIL [Concomitant]
     Indication: PRURITUS
     Route: 061
  3. VIVINOX [Concomitant]
     Indication: INSOMNIA
     Route: 041
  4. VIDAZA [Suspect]
     Route: 058
  5. WHOLE BLOOD [Concomitant]
     Route: 041
  6. VALERIAN [Concomitant]
     Route: 041
  7. VIDAZA [Suspect]
     Indication: MYELODYSPLASTIC SYNDROME
     Route: 058
     Dates: start: 20110401, end: 20120201
  8. OXYBUTYNIN [Concomitant]
     Route: 065

REACTIONS (1)
  - ORGANISING PNEUMONIA [None]
